FAERS Safety Report 16311824 (Version 2)
Quarter: 2019Q2

REPORT INFORMATION
  Report Type: Report from Study
  Country: None (occurrence: GR)
  Receive Date: 20190514
  Receipt Date: 20190515
  Transmission Date: 20190711
  Serious: Yes (Other)
  Sender: FDA-Public Use
  Company Number: GR-ABBVIE-19S-066-2780313-00

PATIENT
  Sex: Male
  Weight: 75 kg

DRUGS (5)
  1. ZINADOL [Concomitant]
     Active Substance: CEFUROXIME AXETIL
     Indication: C-REACTIVE PROTEIN INCREASED
     Route: 048
     Dates: start: 20190509
  2. DUODOPA [Suspect]
     Active Substance: CARBIDOPA\LEVODOPA
     Dosage: MD:7.5ML; CR:1.7ML/H; ED:1.0ML
     Route: 050
     Dates: start: 20190510
  3. DUODOPA [Suspect]
     Active Substance: CARBIDOPA\LEVODOPA
     Dosage: MD:7.7ML; CR:1.7ML/H; ED:1.0ML
     Route: 050
     Dates: start: 20190509, end: 20190510
  4. DUODOPA [Suspect]
     Active Substance: CARBIDOPA\LEVODOPA
     Dosage: MD:7.7ML; CR:1.4ML/H; ED:1.0ML
     Route: 050
     Dates: start: 20190508, end: 20190509
  5. DUODOPA [Suspect]
     Active Substance: CARBIDOPA\LEVODOPA
     Indication: PARKINSON^S DISEASE
     Route: 050
     Dates: start: 20190507, end: 20190508

REACTIONS (2)
  - Stomach mass [Not Recovered/Not Resolved]
  - C-reactive protein increased [Not Recovered/Not Resolved]

NARRATIVE: CASE EVENT DATE: 2019
